FAERS Safety Report 9773531 (Version 2)
Quarter: 2013Q4

REPORT INFORMATION
  Report Type: Spontaneous
  Country: PL (occurrence: PL)
  Receive Date: 20131219
  Receipt Date: 20131219
  Transmission Date: 20140711
  Serious: Yes (Other)
  Sender: FDA-Public Use
  Company Number: ALCN2013PL005596

PATIENT
  Sex: 0

DRUGS (2)
  1. MAXITROL [Suspect]
     Indication: POSTOPERATIVE CARE
     Route: 047
  2. MAXITROL [Suspect]
     Indication: POSTOPERATIVE CARE
     Route: 047

REACTIONS (1)
  - Pupil fixed [Not Recovered/Not Resolved]
